FAERS Safety Report 7406401-1 (Version None)
Quarter: 2011Q2

REPORT INFORMATION
  Report Type: 
  Country: None (occurrence: None)
  Receive Date: 20110411
  Receipt Date: 20110329
  Transmission Date: 20111010
  Serious: Yes (Hospitalization)
  Sender: FDA-Public Use
  Company Number: PHHO2010US11553

PATIENT
  Sex: Female
  Weight: 106.12 kg

DRUGS (8)
  1. MOBIC [Suspect]
  2. ULTRAM [Concomitant]
  3. DARVOCET-N 50 [Concomitant]
  4. DESYREL [Concomitant]
  5. LEXAPRO [Concomitant]
  6. DICLOFENAC SODIUM [Suspect]
     Indication: OSTEOARTHRITIS
     Dosage: 75 MG, BID
     Dates: start: 20100312, end: 20100707
  7. LORTAB [Concomitant]
  8. SKELAXIN [Concomitant]

REACTIONS (9)
  - EJECTION FRACTION [None]
  - PAIN IN EXTREMITY [None]
  - OESOPHAGEAL SPASM [None]
  - NON-CARDIAC CHEST PAIN [None]
  - MITRAL VALVE CALCIFICATION [None]
  - GASTROOESOPHAGEAL REFLUX DISEASE [None]
  - AORTIC STENOSIS [None]
  - CHRONIC OBSTRUCTIVE PULMONARY DISEASE [None]
  - AORTIC VALVE INCOMPETENCE [None]
